FAERS Safety Report 7780412-9 (Version None)
Quarter: 2011Q3

REPORT INFORMATION
  Report Type: 
  Country: None (occurrence: None)
  Receive Date: 20110927
  Receipt Date: 20110920
  Transmission Date: 20111222
  Serious: Yes (Other)
  Sender: FDA-Public Use
  Company Number: US-CEPHALON-2009005625

PATIENT
  Sex: Female

DRUGS (3)
  1. ASCORBIC ACID [Suspect]
  2. VELCADE [Suspect]
  3. TRISENOX [Suspect]
     Indication: MULTIPLE MYELOMA
     Route: 041
     Dates: start: 20070111

REACTIONS (24)
  - PAIN IN EXTREMITY [None]
  - PLATELET COUNT DECREASED [None]
  - HUMERUS FRACTURE [None]
  - FOOT FRACTURE [None]
  - FATIGUE [None]
  - SKIN EXFOLIATION [None]
  - ARTHRALGIA [None]
  - MUSCULAR WEAKNESS [None]
  - RASH [None]
  - DIARRHOEA [None]
  - ASTHENIA [None]
  - THROMBOCYTOPENIA [None]
  - NAUSEA [None]
  - DYSPNOEA [None]
  - HYPERMAGNESAEMIA [None]
  - HYPOKALAEMIA [None]
  - ANAEMIA [None]
  - CONTUSION [None]
  - FALL [None]
  - LETHARGY [None]
  - MALAISE [None]
  - WEIGHT INCREASED [None]
  - NEUTROPENIA [None]
  - MUSCULOSKELETAL PAIN [None]
